FAERS Safety Report 16613268 (Version 1)
Quarter: 2019Q3

REPORT INFORMATION
  Report Type: Spontaneous
  Country: US (occurrence: US)
  Receive Date: 20190722
  Receipt Date: 20190722
  Transmission Date: 20191004
  Serious: Yes (Other)
  Sender: FDA-Public Use
  Company Number: None

PATIENT
  Age: 72 Year
  Sex: Female
  Weight: 67.5 kg

DRUGS (1)
  1. CEPHALEXIN. [Suspect]
     Active Substance: CEPHALEXIN
     Indication: INFECTION
     Route: 048
     Dates: start: 20190716, end: 20190722

REACTIONS (2)
  - Gastrooesophageal reflux disease [None]
  - Therapy cessation [None]

NARRATIVE: CASE EVENT DATE: 20190722
